FAERS Safety Report 8217740-9 (Version None)
Quarter: 2012Q1

REPORT INFORMATION
  Report Type: 
  Country: None (occurrence: None)
  Receive Date: 20120319
  Receipt Date: 20120309
  Transmission Date: 20120608
  Serious: Yes (Other)
  Sender: FDA-Public Use
  Company Number: US-JNJFOC-20120306602

PATIENT
  Age: 58 Year
  Sex: Female

DRUGS (10)
  1. CITALOPRAM HYDROBROMIDE [Suspect]
     Indication: DEPRESSION
     Route: 065
  2. RISPERIDONE [Suspect]
     Indication: ANXIETY DISORDER
     Route: 065
  3. DOXEPIN HCL [Suspect]
     Indication: ANXIETY DISORDER
     Route: 065
  4. CITALOPRAM HYDROBROMIDE [Suspect]
     Indication: ANXIETY DISORDER
     Route: 065
  5. AMLODIPINE [Concomitant]
     Indication: HYPERTENSION
     Route: 065
  6. METOPROLOL SUCCINATE [Concomitant]
     Indication: HYPERTENSION
     Route: 065
  7. SPIRONOLACTONE [Concomitant]
     Indication: HYPERTENSION
     Route: 065
  8. RISPERIDONE [Suspect]
     Indication: DEPRESSION
     Route: 065
  9. BENAZEPRIL HYDROCHLORIDE [Concomitant]
     Indication: HYPERTENSION
     Route: 065
  10. DOXEPIN HCL [Suspect]
     Indication: DEPRESSION
     Route: 065

REACTIONS (1)
  - HYPOMAGNESAEMIA [None]
